FAERS Safety Report 14157259 (Version 2)
Quarter: 2017Q4

REPORT INFORMATION
  Report Type: Report from Study
  Country: FR (occurrence: FR)
  Receive Date: 20171103
  Receipt Date: 20171110
  Transmission Date: 20180321
  Serious: Yes (Death)
  Sender: FDA-Public Use
  Company Number: FR-PFIZER INC-2017468830

PATIENT
  Age: 63 Year
  Sex: Male
  Weight: 74 kg

DRUGS (14)
  1. VANCOMYCINE [Concomitant]
     Active Substance: VANCOMYCIN
     Dosage: 2 G, DAILY
     Route: 042
     Dates: start: 20171026
  2. NEFOPAM [Concomitant]
     Active Substance: NEFOPAM
     Indication: BONE PAIN
     Dosage: 80 MG, DAILY
     Route: 042
     Dates: start: 20171026, end: 20171028
  3. ONDANSETRON [Concomitant]
     Active Substance: ONDANSETRON
     Indication: PROPHYLAXIS OF NAUSEA AND VOMITING
     Dosage: 16 MG, DAILY
     Route: 042
     Dates: start: 20171026, end: 20171028
  4. OXYCODONE [Concomitant]
     Active Substance: OXYCODONE
     Indication: BONE PAIN
     Dosage: 5 MG, DAILY
     Route: 048
     Dates: start: 20171025, end: 20171026
  5. OXYCODONE [Concomitant]
     Active Substance: OXYCODONE
     Indication: HEADACHE
  6. HYDROXYCARBAMIDE [Concomitant]
     Active Substance: HYDROXYUREA
     Indication: HYPERLEUKOCYTOSIS
     Dosage: 3 G, DAILY
     Route: 048
     Dates: start: 20171025, end: 20171026
  7. CYTARABINE. [Suspect]
     Active Substance: CYTARABINE
     Indication: ACUTE MYELOID LEUKAEMIA
     Dosage: 375 MG, DAILY DAY 1
     Dates: start: 20171026
  8. PARACETAMOL [Concomitant]
     Active Substance: ACETAMINOPHEN
     Indication: HEADACHE
  9. RASBURICASE [Concomitant]
     Active Substance: RASBURICASE
     Indication: PROPHYLAXIS
     Dosage: 7.5 MG / 5 ML , DAILY
     Route: 042
     Dates: start: 20171026, end: 20171026
  10. MYLOTARG [Suspect]
     Active Substance: GEMTUZUMAB OZOGAMICIN
     Indication: ACUTE MYELOID LEUKAEMIA
     Dosage: 5 MG, CYCLIC DAY 1
     Dates: start: 20171026
  11. VANCOMYCINE [Concomitant]
     Active Substance: VANCOMYCIN
     Indication: PYREXIA
     Dosage: 1 G, DAILY
     Route: 042
     Dates: start: 20171026, end: 20171026
  12. PIPERACILLIN TAZOBACTAM PA [Concomitant]
     Active Substance: PIPERACILLIN SODIUM\TAZOBACTAM SODIUM
     Indication: PYREXIA
     Dosage: 12 G, DAILY
     Route: 042
     Dates: start: 20171026, end: 20171028
  13. NEFOPAM [Concomitant]
     Active Substance: NEFOPAM
     Indication: HEADACHE
  14. PARACETAMOL [Concomitant]
     Active Substance: ACETAMINOPHEN
     Indication: BONE PAIN
     Dosage: 3 G, DAILY
     Route: 042
     Dates: start: 20171026, end: 20171028

REACTIONS (2)
  - Cardio-respiratory arrest [Fatal]
  - Bone pain [Unknown]

NARRATIVE: CASE EVENT DATE: 20171027
